FAERS Safety Report 9102984 (Version 2)
Quarter: 2013Q4

REPORT INFORMATION
  Report Type: Spontaneous
  Country: AR (occurrence: AR)
  Receive Date: 20130219
  Receipt Date: 20131021
  Transmission Date: 20140711
  Serious: Yes (Hospitalization)
  Sender: FDA-Public Use
  Company Number: AR-CUBIST PHARMACEUTICAL, INC.-2013CBST000097

PATIENT
  Sex: 0

DRUGS (2)
  1. CUBICIN [Suspect]
     Indication: INFECTION
     Dosage: 500 MG, QD
     Route: 042
     Dates: start: 20130110, end: 20130125
  2. CUBICIN [Suspect]
     Indication: OFF LABEL USE

REACTIONS (1)
  - Infection [Not Recovered/Not Resolved]
